FAERS Safety Report 6291566-8 (Version None)
Quarter: 2009Q3

REPORT INFORMATION
  Report Type: 
  Country: None (occurrence: None)
  Receive Date: 20090730
  Receipt Date: 20090723
  Transmission Date: 20100115
  Serious: Yes (Hospitalization)
  Sender: FDA-Public Use
  Company Number: PHHY2009FR31173

PATIENT
  Sex: Female
  Weight: 42.4 kg

DRUGS (2)
  1. ERL 080A ERL+TAB [Suspect]
     Indication: RENAL TRANSPLANT
     Dosage: 1440 MG/DAY
     Dates: start: 20080420
  2. NEORAL [Suspect]
     Indication: RENAL TRANSPLANT
     Dosage: 120 MG/DAY
     Dates: start: 20080420

REACTIONS (6)
  - BACTERIAL PYELONEPHRITIS [None]
  - GRAFT COMPLICATION [None]
  - HAEMATURIA [None]
  - KLEBSIELLA SEPSIS [None]
  - PYELONEPHRITIS ACUTE [None]
  - RENAL FAILURE ACUTE [None]
